FAERS Safety Report 8614455-X (Version None)
Quarter: 2012Q3

REPORT INFORMATION
  Report Type: 
  Country: None (occurrence: None)
  Receive Date: 20120823
  Receipt Date: 20120817
  Transmission Date: 20120928
  Serious: Yes (Other)
  Sender: FDA-Public Use
  Company Number: PHEH2006US15219

PATIENT
  Sex: Female

DRUGS (8)
  1. AREDIA [Suspect]
  2. FEMARA [Suspect]
  3. ZOMETA [Suspect]
     Dosage: 4 MG, QMO
     Route: 042
     Dates: start: 20030916
  4. CELEXA [Concomitant]
  5. DECADRON [Concomitant]
  6. ZOMETA [Suspect]
     Dosage: 4 MG, QMO
     Route: 042
     Dates: start: 20030101
  7. CELEBREX [Concomitant]
  8. MS CONTIN [Concomitant]

REACTIONS (62)
  - BREAST CANCER RECURRENT [None]
  - METASTASES TO SPINE [None]
  - METASTASES TO LIVER [None]
  - PLEURAL EFFUSION [None]
  - ORAL INFECTION [None]
  - STOMATITIS [None]
  - ANXIETY [None]
  - BREAST CANCER STAGE IV [None]
  - DYSURIA [None]
  - FATIGUE [None]
  - WHEEZING [None]
  - ATELECTASIS [None]
  - METASTASES TO CENTRAL NERVOUS SYSTEM [None]
  - PULMONARY OEDEMA [None]
  - DECREASED INTEREST [None]
  - DEPRESSION [None]
  - TENDONITIS [None]
  - CHEST PAIN [None]
  - MASTOIDITIS [None]
  - NAUSEA [None]
  - CENTRAL NERVOUS SYSTEM LESION [None]
  - ABDOMINAL DISTENSION [None]
  - WEIGHT DECREASED [None]
  - ARTHRALGIA [None]
  - BRONCHITIS [None]
  - TOOTHACHE [None]
  - ABSCESS JAW [None]
  - LYMPH NODE CALCIFICATION [None]
  - ILEUS PARALYTIC [None]
  - EXPOSED BONE IN JAW [None]
  - PRIMARY SEQUESTRUM [None]
  - SPLENIC GRANULOMA [None]
  - DIVERTICULUM [None]
  - GENERAL PHYSICAL HEALTH DETERIORATION [None]
  - POLLAKIURIA [None]
  - COMPRESSION FRACTURE [None]
  - INTERVERTEBRAL DISC DEGENERATION [None]
  - PNEUMOTHORAX [None]
  - OSTEOARTHRITIS [None]
  - ANAEMIA [None]
  - LEUKOPENIA [None]
  - MUSCLE SPASMS [None]
  - NEOPLASM MALIGNANT [None]
  - LYMPHADENOPATHY MEDIASTINAL [None]
  - MOUTH ULCERATION [None]
  - DECREASED APPETITE [None]
  - CEREBRAL ISCHAEMIA [None]
  - NEUTROPENIA [None]
  - LUMBAR SPINAL STENOSIS [None]
  - AORTIC CALCIFICATION [None]
  - DEEP VEIN THROMBOSIS [None]
  - AORTIC ARTERIOSCLEROSIS [None]
  - OSTEONECROSIS OF JAW [None]
  - PAIN [None]
  - METASTASES TO BONE [None]
  - URINARY TRACT INFECTION [None]
  - DYSPNOEA [None]
  - SINUSITIS [None]
  - HEADACHE [None]
  - PYREXIA [None]
  - COUGH [None]
  - VOMITING [None]
